FAERS Safety Report 7640041-4 (Version None)
Quarter: 2011Q3

REPORT INFORMATION
  Report Type: 
  Country: None (occurrence: None)
  Receive Date: 20110727
  Receipt Date: 20050822
  Transmission Date: 20111222
  Serious: Yes (Death, Other)
  Sender: FDA-Public Use
  Company Number: PHFR2005GB00806

PATIENT
  Sex: Male

DRUGS (1)
  1. CLOZAPINE [Suspect]
     Indication: SCHIZOPHRENIA
     Dates: start: 20050120

REACTIONS (3)
  - PULMONARY EMBOLISM [None]
  - OBESITY [None]
  - BLOOD CREATINE PHOSPHOKINASE INCREASED [None]
